FAERS Safety Report 6688845-9 (Version None)
Quarter: 2010Q2

REPORT INFORMATION
  Report Type: 
  Country: None (occurrence: None)
  Receive Date: 20100420
  Receipt Date: 20100408
  Transmission Date: 20101027
  Serious: Yes (Other)
  Sender: FDA-Public Use
  Company Number: TH-PFIZER INC-2009300427

PATIENT
  Age: 25 Year
  Sex: Female

DRUGS (1)
  1. CYTOTEC [Suspect]
     Indication: ABORTION INDUCED
     Dosage: 400 UG, SINGLE
     Route: 067
     Dates: start: 20091101, end: 20091101

REACTIONS (3)
  - ABDOMINAL PAIN [None]
  - OFF LABEL USE [None]
  - VAGINAL HAEMORRHAGE [None]
